FAERS Safety Report 7113328-1 (Version None)
Quarter: 2010Q4

REPORT INFORMATION
  Report Type: 
  Country: None (occurrence: None)
  Receive Date: 20101119
  Receipt Date: 20100929
  Transmission Date: 20110411
  Serious: No
  Sender: FDA-Public Use
  Company Number: A0884032A

PATIENT
  Sex: Female

DRUGS (1)
  1. WELLBUTRIN SR [Suspect]
     Dosage: 200MG TWICE PER DAY
     Route: 048
     Dates: start: 20100801

REACTIONS (1)
  - CONSTIPATION [None]
